FAERS Safety Report 23635619 (Version 1)
Quarter: 2024Q1

REPORT INFORMATION
  Report Type: Spontaneous
  Country: US (occurrence: US)
  Receive Date: 20240315
  Receipt Date: 20240315
  Transmission Date: 20240409
  Serious: No
  Sender: FDA-Public Use
  Company Number: US-DRL-USA-LIT/USA/24/0003832

PATIENT
  Age: 18 Year
  Sex: Male

DRUGS (4)
  1. CETIRIZINE [Suspect]
     Active Substance: CETIRIZINE HYDROCHLORIDE
     Indication: Eye allergy
  2. KETOTIFEN [Suspect]
     Active Substance: KETOTIFEN
     Indication: Eye allergy
     Route: 061
  3. OLOPATADINE [Suspect]
     Active Substance: OLOPATADINE
     Indication: Eye allergy
     Route: 061
  4. LORATADINE [Suspect]
     Active Substance: LORATADINE
     Indication: Eye allergy
     Route: 061

REACTIONS (1)
  - Drug ineffective [Unknown]
